FAERS Safety Report 22950115 (Version 3)
Quarter: 2023Q4

REPORT INFORMATION
  Report Type: Spontaneous
  Country: US (occurrence: US)
  Receive Date: 20230915
  Receipt Date: 20231130
  Transmission Date: 20240110
  Serious: Yes (Other)
  Sender: FDA-Public Use
  Company Number: US-PFIZER INC-PV202300155024

PATIENT
  Age: 75 Year
  Sex: Female
  Weight: 88.435 kg

DRUGS (3)
  1. IBRANCE [Suspect]
     Active Substance: PALBOCICLIB
     Indication: Breast cancer metastatic
     Dosage: 125 MG, DAILY
     Dates: start: 202307, end: 202309
  2. IBRANCE [Suspect]
     Active Substance: PALBOCICLIB
     Dosage: 100 MG, CYCLIC (TAKE 100 MG BY MOUTH DAILY. FOR 21 DAYS FOLLOWED BY 7 DAYS OFF. 28 DAY CYCLE)
     Route: 048
     Dates: start: 202309, end: 202311
  3. FULVESTRANT [Concomitant]
     Active Substance: FULVESTRANT
     Dosage: UNK
     Route: 030
     Dates: start: 202307, end: 202311

REACTIONS (4)
  - Cytopenia [Unknown]
  - Malaise [Unknown]
  - White blood cell count decreased [Unknown]
  - Neoplasm progression [Unknown]
